FAERS Safety Report 25585811 (Version 1)
Quarter: 2025Q3

REPORT INFORMATION
  Report Type: Spontaneous
  Country: US (occurrence: None)
  Receive Date: 20250718
  Receipt Date: 20250718
  Transmission Date: 20251021
  Serious: Yes (Hospitalization)
  Sender: FDA-CTU
  Company Number: None

PATIENT
  Sex: Male
  Weight: 64.8 kg

DRUGS (19)
  1. DONEPEZIL HYDROCHLORIDE [Suspect]
     Active Substance: DONEPEZIL HYDROCHLORIDE
     Indication: Dementia
     Dosage: 1 TABLET AT BEDTIME ORAL ?
     Route: 048
     Dates: end: 20250718
  2. DONEPEZIL [Concomitant]
     Active Substance: DONEPEZIL
  3. SERTRALINE [Concomitant]
     Active Substance: SERTRALINE HYDROCHLORIDE
  4. MELATONIN [Concomitant]
     Active Substance: MELATONIN
  5. ACYCLOVIR [Concomitant]
     Active Substance: ACYCLOVIR
  6. Ondestaron [Concomitant]
  7. CLOPIDOGREL [Concomitant]
     Active Substance: CLOPIDOGREL BISULFATE
  8. Hydroxyzine HCL Sucralfate [Concomitant]
  9. BUPRENORPHINE [Concomitant]
     Active Substance: BUPRENORPHINE
  10. AMLODIPINE [Concomitant]
     Active Substance: AMLODIPINE BESYLATE
  11. FINASTERIDE [Concomitant]
     Active Substance: FINASTERIDE
  12. LEVOTHYROXINE SODIUM [Concomitant]
     Active Substance: LEVOTHYROXINE SODIUM
  13. Cholecalcif [Concomitant]
  14. BUSPIRONE [Concomitant]
     Active Substance: BUSPIRONE HYDROCHLORIDE
  15. D [Concomitant]
  16. B12 B1 [Concomitant]
  17. PYRIDOXINE HYDROCHLORIDE [Concomitant]
     Active Substance: PYRIDOXINE HYDROCHLORIDE
  18. hydrochloride/male testosterone [Concomitant]
  19. VITAMIN D3 [Concomitant]
     Active Substance: CHOLECALCIFEROL

REACTIONS (15)
  - Irritable bowel syndrome [None]
  - Gastrooesophageal reflux disease [None]
  - Gastric ulcer [None]
  - Abdominal pain upper [None]
  - Abdominal discomfort [None]
  - Abdominal distension [None]
  - Nausea [None]
  - Vomiting [None]
  - Maple syrup disease [None]
  - Gastrointestinal sounds abnormal [None]
  - Flatulence [None]
  - Weight decreased [None]
  - Illness [None]
  - Fatigue [None]
  - Memory impairment [None]
